FAERS Safety Report 25862684 (Version 2)
Quarter: 2025Q4

REPORT INFORMATION
  Report Type: Spontaneous
  Country: BR (occurrence: BR)
  Receive Date: 20250930
  Receipt Date: 20251102
  Transmission Date: 20260117
  Serious: Yes (Other)
  Sender: AMGEN
  Company Number: BR-AMGEN-BRASP2025190997

PATIENT
  Age: 54 Year
  Sex: Female

DRUGS (3)
  1. REPATHA [Suspect]
     Active Substance: EVOLOCUMAB
     Indication: Dyslipidaemia
     Dosage: 140 MILLIGRAM, Q2WK
     Route: 065
     Dates: start: 202401, end: 20250922
  2. REPATHA [Suspect]
     Active Substance: EVOLOCUMAB
     Indication: Low density lipoprotein increased
  3. REPATHA [Suspect]
     Active Substance: EVOLOCUMAB
     Indication: Arteriosclerosis

REACTIONS (6)
  - Oesophageal candidiasis [Unknown]
  - Gastrooesophageal reflux disease [Unknown]
  - Decreased immune responsiveness [Unknown]
  - Skin papilloma [Not Recovered/Not Resolved]
  - Diarrhoea [Unknown]
  - Light chain analysis increased [Unknown]

NARRATIVE: CASE EVENT DATE: 20250101
